FAERS Safety Report 11030385 (Version 1)
Quarter: 2015Q2

REPORT INFORMATION
  Report Type: Spontaneous
  Country: US (occurrence: None)
  Receive Date: 20150406
  Receipt Date: 20150406
  Transmission Date: 20150821
  Serious: Yes (Other)
  Sender: FDA-Public Use
  Company Number: 2015GMK015431

PATIENT
  Sex: Female

DRUGS (1)
  1. IMIQUIMOD (IMIQUIMOD) (IMIQUIMOD) [Suspect]
     Active Substance: IMIQUIMOD
     Indication: BREAST CANCER METASTATIC
     Dosage: 5 DAYS/WEEK FOR 8 WEEKS
     Route: 061

REACTIONS (4)
  - Fatigue [None]
  - Decreased appetite [None]
  - Application site ulcer [None]
  - Application site dermatitis [None]
